FAERS Safety Report 14382111 (Version 1)
Quarter: 2018Q1

REPORT INFORMATION
  Report Type: Spontaneous
  Country: US (occurrence: US)
  Receive Date: 20180112
  Receipt Date: 20180112
  Transmission Date: 20180509
  Serious: Yes (Death)
  Sender: FDA-Public Use
  Company Number: US-MALLINCKRODT-T201705582

PATIENT
  Sex: Female

DRUGS (2)
  1. INOMAX [Suspect]
     Active Substance: NITRIC OXIDE
     Indication: SEPTIC SHOCK
     Dosage: UNKNOWN
     Route: 065
     Dates: start: 20170916
  2. INOMAX [Suspect]
     Active Substance: NITRIC OXIDE
     Indication: HYPOXIA

REACTIONS (2)
  - Off label use [Unknown]
  - Death [Fatal]
